FAERS Safety Report 10057799 (Version 2)
Quarter: 2014Q2

REPORT INFORMATION
  Report Type: Spontaneous
  Country: US (occurrence: US)
  Receive Date: 20140404
  Receipt Date: 20140602
  Transmission Date: 20141212
  Serious: No
  Sender: FDA-Public Use
  Company Number: US-009507513-1403USA006196

PATIENT
  Age: 59 Year
  Sex: Female
  Weight: 45.35 kg

DRUGS (3)
  1. PRINIVIL [Suspect]
     Dosage: 2.5 MG, QD
     Route: 048
  2. CARVEDILOL [Suspect]
     Dosage: 6.25 MG, BID
  3. FUROSEMIDE [Concomitant]
     Dosage: 40 MG, QD
     Route: 048

REACTIONS (3)
  - Fatigue [Recovering/Resolving]
  - Blood pressure decreased [Recovering/Resolving]
  - Dizziness [Recovering/Resolving]
